FAERS Safety Report 4894376-9 (Version None)
Quarter: 2006Q1

REPORT INFORMATION
  Report Type: 
  Country: None (occurrence: None)
  Receive Date: 20060127
  Receipt Date: 20060119
  Transmission Date: 20060701
  Serious: Yes (Hospitalization)
  Sender: FDA-Public Use
  Company Number: US-JNJFOC-20060104259

PATIENT
  Sex: Female

DRUGS (5)
  1. INFLIXIMAB [Suspect]
     Indication: RHEUMATOID ARTHRITIS
     Route: 042
  2. HUMIRA [Concomitant]
  3. PREDNISONE [Concomitant]
  4. TYLENOL-500 [Concomitant]
  5. MORPHINE SULFATE [Concomitant]

REACTIONS (5)
  - CARDIAC FAILURE CONGESTIVE [None]
  - CONVULSION [None]
  - CORONARY ARTERY THROMBOSIS [None]
  - INFLUENZA [None]
  - LOWER GASTROINTESTINAL HAEMORRHAGE [None]
